FAERS Safety Report 21780676 (Version 1)
Quarter: 2022Q4

REPORT INFORMATION
  Report Type: Spontaneous
  Country: CN (occurrence: CN)
  Receive Date: 20221227
  Receipt Date: 20221227
  Transmission Date: 20230113
  Serious: Yes (Hospitalization)
  Sender: FDA-Public Use
  Company Number: CN-BAYER-2022A171839

PATIENT
  Age: 9 Decade
  Sex: Female

DRUGS (3)
  1. XARELTO [Suspect]
     Active Substance: RIVAROXABAN
     Indication: Hip arthroplasty
     Dosage: UNK
     Route: 048
  2. XARELTO [Suspect]
     Active Substance: RIVAROXABAN
     Indication: Thrombosis prophylaxis
     Route: 048
  3. GLUCOBAY [Suspect]
     Active Substance: ACARBOSE
     Indication: Diabetes mellitus
     Dosage: UNK
     Route: 048

REACTIONS (3)
  - Fall [Recovered/Resolved]
  - Pain [Not Recovered/Not Resolved]
  - Intentional product use issue [Unknown]

NARRATIVE: CASE EVENT DATE: 20210110
